FAERS Safety Report 9658569 (Version 2)
Quarter: 2013Q4

REPORT INFORMATION
  Report Type: Spontaneous
  Country: US (occurrence: US)
  Receive Date: 20131030
  Receipt Date: 20131030
  Transmission Date: 20140711
  Serious: No
  Sender: FDA-Public Use
  Company Number: US-PURDUE-USA-2010-0048665

PATIENT
  Sex: Female

DRUGS (2)
  1. OXYCONTIN (NDA 22-272) [Suspect]
     Indication: PRODUCT USED FOR UNKNOWN INDICATION
     Dosage: 40 MG, Q12H
  2. OXYCONTIN (NDA 22-272) [Suspect]
     Dosage: 80 MG, Q12H

REACTIONS (3)
  - Foreign body [Unknown]
  - Dysgeusia [Unknown]
  - Vomiting [Unknown]
